FAERS Safety Report 20920311 (Version 1)
Quarter: 2022Q2

REPORT INFORMATION
  Report Type: Spontaneous
  Country: US (occurrence: None)
  Receive Date: 20220606
  Receipt Date: 20220606
  Transmission Date: 20220721
  Serious: Yes (Hospitalization)
  Sender: FDA-Public Use
  Company Number: None

PATIENT
  Age: 5 Year
  Sex: Female

DRUGS (2)
  1. PULMOZYME [Suspect]
     Active Substance: DORNASE ALFA
  2. ORKAMBI [Concomitant]

REACTIONS (3)
  - Constipation [None]
  - Gastrooesophageal reflux disease [None]
  - Respiratory disorder [None]

NARRATIVE: CASE EVENT DATE: 20220530
